FAERS Safety Report 4611006-1 (Version None)
Quarter: 2005Q1

REPORT INFORMATION
  Report Type: 
  Country: None (occurrence: None)
  Receive Date: 20050316
  Receipt Date: 20050316
  Transmission Date: 20050727
  Serious: Yes (Hospitalization)
  Sender: FDA-Public Use
  Company Number: None

PATIENT
  Age: 72 Year
  Sex: Male
  Weight: 82.1011 kg

DRUGS (5)
  1. NORTRIPTYLINE HCL [Suspect]
     Indication: HEADACHE
     Dosage: 2 CAPSULES AT BEDTIME
  2. NORTRIPTYLINE HCL [Suspect]
     Indication: PROPHYLAXIS
     Dosage: 2 CAPSULES AT BEDTIME
  3. ZOCOR [Concomitant]
  4. TRAZODONE HCL [Concomitant]
  5. TRIAM/HCTZ [Concomitant]

REACTIONS (3)
  - EXTRASYSTOLES [None]
  - HEART RATE IRREGULAR [None]
  - TACHYCARDIA [None]
